FAERS Safety Report 11317531 (Version 1)
Quarter: 2015Q3

REPORT INFORMATION
  Report Type: Spontaneous
  Country: US (occurrence: US)
  Receive Date: 20150728
  Receipt Date: 20150728
  Transmission Date: 20151125
  Serious: Yes (Death, Other)
  Sender: FDA-Public Use
  Company Number: US-TEVA-580869USA

PATIENT
  Age: 66 Year
  Sex: Male

DRUGS (8)
  1. FLUOROURACIL. [Suspect]
     Active Substance: FLUOROURACIL
     Indication: PANCREATIC CARCINOMA METASTATIC
     Dosage: 7 CYCLES (25% DOSE REDUCTION POST CYCLE 2)
     Route: 065
  2. IBUPROFEN. [Concomitant]
     Active Substance: IBUPROFEN
     Route: 065
  3. FOLINIC ACID [Suspect]
     Active Substance: LEUCOVORIN
     Indication: PANCREATIC CARCINOMA METASTATIC
     Dosage: 7 CYCLES (25% DOSE REDUCTION POST CYCLE 2)
     Route: 065
  4. IRINOTECAN [Suspect]
     Active Substance: IRINOTECAN
     Indication: PANCREATIC CARCINOMA METASTATIC
     Dosage: 7 CYCLES (25% DOSE REDUCTION POST CYCLE 2)
     Route: 065
  5. OXALIPLATIN INJECTION 50MG/10 ML AND 100MG/20ML [Suspect]
     Active Substance: OXALIPLATIN
     Indication: PANCREATIC CARCINOMA METASTATIC
     Dosage: 7 CYCLES (25% DOSE REDUCTION POST CYCLE 2)
     Route: 065
  6. METOPROLOL TARTRATE. [Concomitant]
     Active Substance: METOPROLOL TARTRATE
     Route: 065
  7. SIMVASTATIN. [Concomitant]
     Active Substance: SIMVASTATIN
     Route: 065
  8. FLECAINIDE [Concomitant]
     Active Substance: FLECAINIDE
     Route: 065

REACTIONS (8)
  - Gastrointestinal mucosal disorder [Unknown]
  - Liver abscess [Unknown]
  - Streptococcal abscess [Unknown]
  - Death [Fatal]
  - Brain abscess [Unknown]
  - Neutropenia [Recovered/Resolved]
  - Splenic abscess [Unknown]
  - Gastrointestinal inflammation [Unknown]
